FAERS Safety Report 22914508 (Version 2)
Quarter: 2023Q4

REPORT INFORMATION
  Report Type: Spontaneous
  Country: CA (occurrence: CA)
  Receive Date: 20230907
  Receipt Date: 20231030
  Transmission Date: 20240110
  Serious: Yes (Other)
  Sender: FDA-Public Use
  Company Number: CA-CELLTRION INC.-2022CA012117

PATIENT

DRUGS (3)
  1. INFLECTRA [Suspect]
     Active Substance: INFLIXIMAB-DYYB
     Indication: Crohn^s disease
     Dosage: 7.5 MG/KG, (1DF), EVERY 5 WEEKS
     Route: 042
     Dates: start: 20220719, end: 20230118
  2. INFLECTRA [Suspect]
     Active Substance: INFLIXIMAB-DYYB
     Dosage: 7.5 MG/KG, 1 DF, EVERY 8 WEEKS
     Route: 042
     Dates: start: 20230315
  3. INFLECTRA [Suspect]
     Active Substance: INFLIXIMAB-DYYB
     Dosage: 7.5 MG/KG, 1 DF, EVERY 8 WEEKS
     Route: 042
     Dates: start: 20230823

REACTIONS (6)
  - Faecal calprotectin increased [Not Recovered/Not Resolved]
  - Therapeutic response shortened [Unknown]
  - Drug level above therapeutic [Not Recovered/Not Resolved]
  - Off label use [Unknown]
  - Off label use [Unknown]
  - Intentional product use issue [Unknown]

NARRATIVE: CASE EVENT DATE: 20230101
